FAERS Safety Report 4906680-6 (Version None)
Quarter: 2006Q1

REPORT INFORMATION
  Report Type: 
  Country: None (occurrence: None)
  Receive Date: 20060209
  Receipt Date: 20060131
  Transmission Date: 20060701
  Serious: Yes (Hospitalization)
  Sender: FDA-Public Use
  Company Number: 2006AP00587

PATIENT
  Age: 74 Year
  Sex: Male

DRUGS (4)
  1. ZOLADEX [Suspect]
     Indication: PROSTATE CANCER
     Route: 058
     Dates: start: 20050301
  2. PROSTAL [Concomitant]
     Route: 048
  3. FLIVAS [Concomitant]
     Route: 048
  4. EVIPROSTAT [Concomitant]

REACTIONS (2)
  - HAEMATOMA [None]
  - INTERSTITIAL LUNG DISEASE [None]
